FAERS Safety Report 4856190-X (Version None)
Quarter: 2005Q4

REPORT INFORMATION
  Report Type: 
  Country: None (occurrence: None)
  Receive Date: 20051216
  Receipt Date: 20051005
  Transmission Date: 20060501
  Serious: Yes (Hospitalization, Other)
  Sender: FDA-Public Use
  Company Number: IT-MERCK-0510ITA00013

PATIENT
  Age: 62 Year
  Sex: Male
  Weight: 73 kg

DRUGS (4)
  1. VIOXX [Suspect]
     Indication: RHEUMATOID ARTHRITIS
     Route: 048
     Dates: start: 20000701, end: 20001101
  2. NIMESULIDE [Concomitant]
     Route: 065
  3. RANITIDINE HYDROCHLORIDE [Concomitant]
     Route: 065
  4. METHYLPREDNISOLONE [Concomitant]
     Route: 065

REACTIONS (3)
  - CEREBROVASCULAR ACCIDENT [None]
  - MENINGITIS [None]
  - RHEUMATOID ARTHRITIS [None]
